FAERS Safety Report 8854211 (Version 1)
Quarter: 2012Q4

REPORT INFORMATION
  Report Type: Spontaneous
  Country: US (occurrence: None)
  Receive Date: 20121019
  Receipt Date: 20121019
  Transmission Date: 20130627
  Serious: Yes (Other)
  Sender: FDA-Public Use
  Company Number: None

PATIENT
  Age: 45 Year
  Sex: Male
  Weight: 77.11 kg

DRUGS (1)
  1. RISPERIDONE [Suspect]

REACTIONS (1)
  - Drug ineffective [None]
